FAERS Safety Report 8574446-4 (Version None)
Quarter: 2012Q3

REPORT INFORMATION
  Report Type: 
  Country: None (occurrence: None)
  Receive Date: 20120806
  Receipt Date: 20120724
  Transmission Date: 20120928
  Serious: No
  Sender: FDA-Public Use
  Company Number: US-ABBOTT-12P-163-0962075-00

PATIENT
  Sex: Female
  Weight: 77.18 kg

DRUGS (1)
  1. DEPAKOTE ER [Suspect]
     Indication: EPILEPSY
     Dosage: 750MG IN AM + 500MG IN PM
     Dates: start: 19820101

REACTIONS (5)
  - MENORRHAGIA [None]
  - DYSMENORRHOEA [None]
  - GINGIVAL HYPERTROPHY [None]
  - LYMPHOMA [None]
  - RASH [None]
